FAERS Safety Report 8729737 (Version 2)
Quarter: 2015Q3

REPORT INFORMATION
  Report Type: Report from Study
  Country: US (occurrence: US)
  Receive Date: 20120817
  Receipt Date: 20150702
  Transmission Date: 20151125
  Serious: Yes (Other)
  Sender: FDA-Public Use
  Company Number: US-ROCHE-1100848

PATIENT
  Age: 55 Year
  Sex: Male

DRUGS (28)
  1. ACTIVASE [Suspect]
     Active Substance: ALTEPLASE
     Route: 042
  2. LIDOCAINE. [Concomitant]
     Active Substance: LIDOCAINE
     Route: 065
  3. TRIDIL [Concomitant]
     Active Substance: NITROGLYCERIN
  4. ISORDIL [Concomitant]
     Active Substance: ISOSORBIDE DINITRATE
     Route: 048
  5. TAMBOCOR [Concomitant]
     Active Substance: FLECAINIDE ACETATE
     Route: 048
  6. OXYGEN. [Concomitant]
     Active Substance: OXYGEN
  7. LANOXIN [Concomitant]
     Active Substance: DIGOXIN
     Route: 065
  8. ATROVENT [Concomitant]
     Active Substance: IPRATROPIUM BROMIDE
     Dosage: 2 PUFFS
     Route: 065
  9. ACTIVASE [Suspect]
     Active Substance: ALTEPLASE
     Indication: PRODUCT USED FOR UNKNOWN INDICATION
     Route: 040
  10. LASIX [Concomitant]
     Active Substance: FUROSEMIDE
     Route: 042
  11. MORPHINE SULFATE. [Concomitant]
     Active Substance: MORPHINE SULFATE
     Route: 042
  12. PROCAINAMIDE [Concomitant]
     Active Substance: PROCAINAMIDE HYDROCHLORIDE
     Route: 050
  13. THEOPHYLLINE [Concomitant]
     Active Substance: THEOPHYLLINE ANHYDROUS
     Route: 065
  14. ROBITUSSIN (GUAIFENESIN) [Concomitant]
     Active Substance: GUAIFENESIN
     Dosage: 10 CC
     Route: 048
  15. CARDIZEM [Concomitant]
     Active Substance: DILTIAZEM HYDROCHLORIDE
     Route: 065
  16. AZMACORT [Concomitant]
     Active Substance: TRIAMCINOLONE ACETONIDE
     Dosage: 2 PUFFS
     Route: 065
  17. PRONESTYL [Concomitant]
     Active Substance: PROCAINAMIDE HYDROCHLORIDE
     Route: 065
  18. ZINACEF [Concomitant]
     Active Substance: CEFUROXIME SODIUM
  19. RYTHMOL [Concomitant]
     Active Substance: PROPAFENONE HYDROCHLORIDE
  20. XANAX [Concomitant]
     Active Substance: ALPRAZOLAM
     Route: 065
  21. ACTIVASE [Suspect]
     Active Substance: ALTEPLASE
     Route: 065
  22. LIDOCAINE. [Concomitant]
     Active Substance: LIDOCAINE
     Dosage: 60 CC/HOUR
     Route: 065
  23. ZANTAC [Concomitant]
     Active Substance: RANITIDINE HYDROCHLORIDE
     Route: 048
  24. HEPARIN [Concomitant]
     Active Substance: HEPARIN SODIUM
  25. K-LOR [Concomitant]
     Route: 048
  26. PROVERA [Concomitant]
     Active Substance: MEDROXYPROGESTERONE ACETATE
     Route: 065
  27. ACTIVASE [Suspect]
     Active Substance: ALTEPLASE
     Route: 065
  28. DOBUTAMINE [Concomitant]
     Active Substance: DOBUTAMINE\DOBUTAMINE HYDROCHLORIDE

REACTIONS (16)
  - Chest pain [Unknown]
  - Pyrexia [Unknown]
  - Asthenia [Unknown]
  - Electrocardiogram ST segment elevation [Unknown]
  - Wheezing [Unknown]
  - Extrasystoles [Unknown]
  - Glucose tolerance impaired [Unknown]
  - Pneumonia [Unknown]
  - Dyspnoea [Unknown]
  - Stupor [Unknown]
  - Rectal haemorrhage [Unknown]
  - Gastrointestinal haemorrhage [Unknown]
  - Hypercapnia [Unknown]
  - Ventricular tachycardia [Unknown]
  - Cough [Unknown]
  - Hyperhidrosis [Unknown]
